FAERS Safety Report 8911477 (Version 2)
Quarter: 2012Q4

REPORT INFORMATION
  Report Type: 
  Country: US (occurrence: US)
  Receive Date: 20121115
  Receipt Date: 20121210
  Transmission Date: 20130627
  Serious: Yes (Other)
  Sender: FDA-Public Use
  Company Number: US-MERCK-1211USA005411

PATIENT
  Age: 59 None
  Sex: Male

DRUGS (4)
  1. JANUVIA [Suspect]
     Dosage: 100 mg, qd
     Route: 048
     Dates: start: 2007, end: 20121015
  2. METFORMIN [Concomitant]
  3. AVANDIA [Concomitant]
  4. GLIPIZIDE [Concomitant]

REACTIONS (5)
  - Coronary artery bypass [Unknown]
  - Cardiac failure congestive [Unknown]
  - Nausea [Unknown]
  - Blood glucose abnormal [Unknown]
  - Wrong technique in drug usage process [Unknown]
